FAERS Safety Report 8038357-5 (Version None)
Quarter: 2012Q1

REPORT INFORMATION
  Report Type: 
  Country: None (occurrence: None)
  Receive Date: 20120111
  Receipt Date: 20111206
  Transmission Date: 20120608
  Serious: No
  Sender: FDA-Public Use
  Company Number: US-AMGEN-USASP2011059672

PATIENT
  Age: 58 Year
  Sex: Female

DRUGS (2)
  1. ENBREL [Suspect]
     Indication: PSORIATIC ARTHROPATHY
     Dosage: 50 MG, QWK
     Dates: start: 20110701, end: 20111028
  2. ENBREL [Suspect]
     Indication: PROSTATIC SPECIFIC ANTIGEN
     Dates: start: 20110701

REACTIONS (1)
  - BRONCHITIS [None]
